FAERS Safety Report 6369842-X (Version None)
Quarter: 2009Q3

REPORT INFORMATION
  Report Type: 
  Country: None (occurrence: None)
  Receive Date: 20090923
  Receipt Date: 20070515
  Transmission Date: 20100115
  Serious: Yes (Disabling, Other)
  Sender: FDA-Public Use
  Company Number: US-ASTRAZENECA-2006UW11315

PATIENT
  Age: 367 Month
  Sex: Male
  Weight: 89.8 kg

DRUGS (11)
  1. SEROQUEL [Suspect]
     Indication: NERVOUSNESS
     Route: 048
     Dates: start: 20011101, end: 20060301
  2. SEROQUEL [Suspect]
     Indication: INSOMNIA
     Route: 048
     Dates: start: 20011101, end: 20060301
  3. SEROQUEL [Suspect]
     Route: 048
     Dates: start: 20040310
  4. SEROQUEL [Suspect]
     Route: 048
     Dates: start: 20040310
  5. ZYPREXA [Suspect]
  6. CLOZARIL [Suspect]
  7. DOXYCYCLINE [Concomitant]
     Dosage: 100 MG, 500 MG
     Dates: start: 20040310
  8. ULTRAM [Concomitant]
     Indication: PAIN
     Dosage: 50 MG TWO TIMES A DAY, 50 MG THREE TIMES A DAY
     Route: 048
     Dates: start: 20040310
  9. GLUCOTROL [Concomitant]
     Route: 048
     Dates: start: 20041112
  10. LEXAPRO [Concomitant]
     Indication: ANXIETY DISORDER
     Dates: start: 20040511
  11. TRAZODONE [Concomitant]
     Indication: INSOMNIA
     Dates: start: 20040511

REACTIONS (6)
  - DIABETES MELLITUS [None]
  - DIABETES MELLITUS INADEQUATE CONTROL [None]
  - DIABETIC KETOACIDOSIS [None]
  - GLYCOSURIA [None]
  - HYPERGLYCAEMIA [None]
  - TYPE 2 DIABETES MELLITUS [None]
